FAERS Safety Report 4982385-0 (Version None)
Quarter: 2006Q2

REPORT INFORMATION
  Report Type: 
  Country: None (occurrence: None)
  Receive Date: 20060419
  Receipt Date: 20060403
  Transmission Date: 20061013
  Serious: Yes (Hospitalization)
  Sender: FDA-Public Use
  Company Number: 2005001122

PATIENT
  Age: 69 Year
  Sex: Female
  Weight: 63.5036 kg

DRUGS (4)
  1. TARCEVA [Suspect]
     Indication: NON-SMALL CELL LUNG CANCER
     Dosage: SEE IMAGE
     Route: 048
  2. TARCEVA [Suspect]
     Indication: NON-SMALL CELL LUNG CANCER
     Dosage: SEE IMAGE
     Route: 048
  3. METAMUCIL-2 [Concomitant]
  4. CYANOCOBALAMIN [Concomitant]

REACTIONS (8)
  - ALOPECIA [None]
  - CYSTITIS [None]
  - DIARRHOEA [None]
  - FATIGUE [None]
  - GROWTH OF EYELASHES [None]
  - HYPOTRICHOSIS [None]
  - RASH [None]
  - VOMITING [None]
